FAERS Safety Report 9138585 (Version 1)
Quarter: 2013Q1

REPORT INFORMATION
  Report Type: Spontaneous
  Country: US (occurrence: None)
  Receive Date: 20130227
  Receipt Date: 20130227
  Transmission Date: 20140127
  Serious: Yes (Death, Other)
  Sender: FDA-Public Use
  Company Number: 1302-242

PATIENT
  Age: 87 Year
  Sex: Female

DRUGS (1)
  1. EYLEA (AFLIBERCEPT) (INJECTION) (AFLIBERCEPT) [Suspect]
     Dosage: INTRAVITREAL
     Dates: start: 20120807

REACTIONS (1)
  - Dementia [None]
